FAERS Safety Report 25194324 (Version 2)
Quarter: 2025Q2

REPORT INFORMATION
  Report Type: Report from Study
  Country: JP (occurrence: JP)
  Receive Date: 20250414
  Receipt Date: 20250426
  Transmission Date: 20250716
  Serious: Yes (Hospitalization)
  Sender: ABBVIE
  Company Number: JP-ABBVIE-6224370

PATIENT
  Age: 81 Year
  Sex: Female

DRUGS (1)
  1. VYALEV [Suspect]
     Active Substance: FOSCARBIDOPA\FOSLEVODOPA
     Indication: Parkinson^s disease
     Dosage: CANNULA SIZE: 6 MM
     Route: 058
     Dates: start: 20250313, end: 20250404

REACTIONS (4)
  - Parkinson^s disease [Recovering/Resolving]
  - Therapeutic product effect incomplete [Unknown]
  - Intentional medical device removal by patient [Unknown]
  - Cognitive disorder [Unknown]

NARRATIVE: CASE EVENT DATE: 20250101
